FAERS Safety Report 23388506 (Version 2)
Quarter: 2024Q1

REPORT INFORMATION
  Report Type: Spontaneous
  Country: US (occurrence: US)
  Receive Date: 20240110
  Receipt Date: 20240117
  Transmission Date: 20240410
  Serious: No
  Sender: FDA-Public Use
  Company Number: US-SANOFI-01895877

PATIENT
  Age: 73 Year
  Sex: Male

DRUGS (5)
  1. PLAVIX [Suspect]
     Active Substance: CLOPIDOGREL BISULFATE
     Indication: Antiplatelet therapy
     Dosage: 75 MG, QD
  2. ELIQUIS [Concomitant]
     Active Substance: APIXABAN
  3. LISINOPRIL [Concomitant]
     Active Substance: LISINOPRIL
  4. ASPIRIN [Concomitant]
     Active Substance: ASPIRIN
  5. OXYCODONE [Concomitant]
     Active Substance: OXYCODONE
     Indication: Groin pain
     Dosage: UNK UNK, QD

REACTIONS (7)
  - Weight decreased [Unknown]
  - Dry mouth [Unknown]
  - Groin pain [Unknown]
  - Fear of death [Unknown]
  - Bladder hypertrophy [Unknown]
  - Decreased appetite [Unknown]
  - Ageusia [Unknown]
